FAERS Safety Report 8216918-8 (Version None)
Quarter: 2012Q1

REPORT INFORMATION
  Report Type: 
  Country: None (occurrence: None)
  Receive Date: 20120318
  Receipt Date: 20111230
  Transmission Date: 20120608
  Serious: Yes (Other)
  Sender: FDA-Public Use
  Company Number: US-ROCHE-1026292

PATIENT
  Age: 79 Year
  Sex: Male

DRUGS (6)
  1. KLONOPIN [Suspect]
     Indication: PRODUCT USED FOR UNKNOWN INDICATION
  2. CLONAZEPAM [Suspect]
     Indication: ANXIETY
  3. FLUVOXAMINE MALEATE [Concomitant]
     Indication: ANXIETY
  4. DIAZEPAM [Suspect]
     Indication: ANXIETY
  5. ATIVAN [Concomitant]
     Indication: ANXIETY
  6. VALIUM [Suspect]
     Indication: ANXIETY
     Route: 048

REACTIONS (9)
  - DIZZINESS [None]
  - SOMNOLENCE [None]
  - FALL [None]
  - FATIGUE [None]
  - MENTAL DISORDER [None]
  - ILL-DEFINED DISORDER [None]
  - COORDINATION ABNORMAL [None]
  - SYNCOPE [None]
  - DEPRESSION [None]
